FAERS Safety Report 24823487 (Version 2)
Quarter: 2025Q1

REPORT INFORMATION
  Report Type: Spontaneous
  Country: DE (occurrence: DE)
  Receive Date: 20250109
  Receipt Date: 20250116
  Transmission Date: 20250408
  Serious: Yes (Hospitalization, Other)
  Sender: TAKEDA
  Company Number: DE-TAKEDA-2025TUS002258

PATIENT
  Sex: Female

DRUGS (7)
  1. ENTYVIO [Suspect]
     Active Substance: VEDOLIZUMAB
     Indication: Colitis
  2. PACLITAXEL [Concomitant]
     Active Substance: PACLITAXEL
  3. AVASTIN [Concomitant]
     Active Substance: BEVACIZUMAB
  4. PEMBROLIZUMAB [Concomitant]
     Active Substance: PEMBROLIZUMAB
  5. CARBOPLATIN [Concomitant]
     Active Substance: CARBOPLATIN
  6. PREDNISOLONE [Concomitant]
     Active Substance: PREDNISOLONE
  7. PACLITAXEL [Concomitant]
     Active Substance: PACLITAXEL

REACTIONS (3)
  - Immune-mediated enterocolitis [Unknown]
  - Metastases to bone [Unknown]
  - Product dose omission issue [Unknown]

NARRATIVE: CASE EVENT DATE: 20230601
